FAERS Safety Report 6306755-3 (Version None)
Quarter: 2009Q3

REPORT INFORMATION
  Report Type: 
  Country: None (occurrence: None)
  Receive Date: 20090810
  Receipt Date: 20090728
  Transmission Date: 20100115
  Serious: Yes (Hospitalization, Other)
  Sender: FDA-Public Use
  Company Number: ENTC2009-0250

PATIENT
  Age: 83 Year
  Sex: Female

DRUGS (5)
  1. STALEVO 100 [Suspect]
     Indication: PARKINSON'S DISEASE
     Dosage: 150 MG, 6 DF/DAY
  2. LEPONEX [Concomitant]
  3. MADOPAR [Concomitant]
  4. MOTILIUM [Concomitant]
  5. FENOFIBRATE [Concomitant]

REACTIONS (4)
  - DECREASED APPETITE [None]
  - HALLUCINATION [None]
  - PULMONARY OEDEMA [None]
  - WEIGHT DECREASED [None]
